FAERS Safety Report 7865962-9 (Version None)
Quarter: 2011Q4

REPORT INFORMATION
  Report Type: 
  Country: None (occurrence: None)
  Receive Date: 20111028
  Receipt Date: 20110329
  Transmission Date: 20120403
  Serious: No
  Sender: FDA-Public Use
  Company Number: US-GLAXOSMITHKLINE-A0920436A

PATIENT
  Age: 29 Year
  Sex: Female

DRUGS (4)
  1. ADVAIR DISKUS 100/50 [Suspect]
     Indication: ASTHMA
     Dosage: 1PUFF TWICE PER DAY
     Route: 055
     Dates: start: 20030101
  2. PROAIR HFA [Concomitant]
  3. FLUTICASONE NASAL [Concomitant]
  4. XOPENEX [Concomitant]

REACTIONS (1)
  - DRUG INEFFECTIVE [None]
